FAERS Safety Report 8485221-3 (Version None)
Quarter: 2012Q3

REPORT INFORMATION
  Report Type: 
  Country: None (occurrence: None)
  Receive Date: 20120703
  Receipt Date: 20120625
  Transmission Date: 20120928
  Serious: Yes (Other)
  Sender: FDA-Public Use
  Company Number: US-US-EMD SERONO, INC.-7143554

PATIENT
  Sex: Female

DRUGS (2)
  1. REBIF [Suspect]
     Indication: MULTIPLE SCLEROSIS
     Route: 058
     Dates: start: 20120518
  2. REBIF [Suspect]
     Route: 058

REACTIONS (4)
  - URINARY TRACT INFECTION [None]
  - FATIGUE [None]
  - PYELONEPHRITIS [None]
  - MUSCULOSKELETAL DISCOMFORT [None]
